FAERS Safety Report 5985158-5 (Version None)
Quarter: 2008Q4

REPORT INFORMATION
  Report Type: 
  Country: None (occurrence: None)
  Receive Date: 20081203
  Receipt Date: 20081121
  Transmission Date: 20090506
  Serious: Yes (Other)
  Sender: FDA-Public Use
  Company Number: 232197K08USA

PATIENT
  Age: 31 Year
  Sex: Female

DRUGS (2)
  1. REBIF [Suspect]
     Indication: MULTIPLE SCLEROSIS
     Dosage: 44 MCG, 3 IN 1 WEES, SUBCUTANEOUS
     Route: 058
     Dates: start: 20040507
  2. BIRTH CONTROL PILLS (ALL OTHER THERAPEUTIC PRODUCTS) [Concomitant]

REACTIONS (3)
  - PAPILLOMA VIRAL INFECTION [None]
  - PRECANCEROUS CELLS PRESENT [None]
  - SMEAR CERVIX ABNORMAL [None]
